FAERS Safety Report 25494487 (Version 1)
Quarter: 2025Q2

REPORT INFORMATION
  Report Type: Report from Study
  Country: DE (occurrence: DE)
  Receive Date: 20250630
  Receipt Date: 20250630
  Transmission Date: 20250717
  Serious: Yes (Other)
  Sender: EXELIXIS
  Company Number: DE-IPSEN Group, Research and Development-2025-02365

PATIENT

DRUGS (13)
  1. CABOZANTINIB [Suspect]
     Active Substance: CABOZANTINIB
     Indication: Renal cell carcinoma
     Dosage: 40 MG, QD (MORNING)
     Route: 065
     Dates: end: 20250520
  2. NIVOLUMAB [Suspect]
     Active Substance: NIVOLUMAB
     Indication: Renal cell carcinoma
     Dates: start: 20241209
  3. NIVOLUMAB [Suspect]
     Active Substance: NIVOLUMAB
     Dates: start: 20241224
  4. NIVOLUMAB [Suspect]
     Active Substance: NIVOLUMAB
     Dates: start: 20250106
  5. NIVOLUMAB [Suspect]
     Active Substance: NIVOLUMAB
     Dates: start: 20250203
  6. NIVOLUMAB [Suspect]
     Active Substance: NIVOLUMAB
     Dates: start: 20250218
  7. NIVOLUMAB [Suspect]
     Active Substance: NIVOLUMAB
     Dates: start: 20250304
  8. NIVOLUMAB [Suspect]
     Active Substance: NIVOLUMAB
     Dates: start: 20250318
  9. NIVOLUMAB [Suspect]
     Active Substance: NIVOLUMAB
     Dates: start: 20250401
  10. NIVOLUMAB [Suspect]
     Active Substance: NIVOLUMAB
     Dates: start: 20250415
  11. NIVOLUMAB [Suspect]
     Active Substance: NIVOLUMAB
     Dates: start: 20250429
  12. NIVOLUMAB [Suspect]
     Active Substance: NIVOLUMAB
     Dates: start: 20250513
  13. HYDROXYUREA [Concomitant]
     Active Substance: HYDROXYUREA
     Indication: Thrombocytosis
     Dosage: 500 MG, BID
     Route: 048
     Dates: start: 20241008

REACTIONS (6)
  - Condition aggravated [Unknown]
  - Anal abscess [Unknown]
  - Anal fistula [Unknown]
  - Hypertension [Unknown]
  - Pyrexia [Recovered/Resolved]
  - Upper respiratory tract infection [Recovered/Resolved]

NARRATIVE: CASE EVENT DATE: 20250118
